FAERS Safety Report 12450450 (Version 2)
Quarter: 2016Q3

REPORT INFORMATION
  Report Type: Report from Study
  Country: NL (occurrence: NL)
  Receive Date: 20160609
  Receipt Date: 20160811
  Transmission Date: 20161109
  Serious: Yes (Other)
  Sender: FDA-Public Use
  Company Number: NL-CELGENEUS-NLD-2016056102

PATIENT
  Age: 86 Year
  Sex: Female

DRUGS (6)
  1. ALENDRONINEZUUR [Concomitant]
     Indication: PRODUCT USED FOR UNKNOWN INDICATION
     Route: 065
  2. NAPROXEN. [Concomitant]
     Active Substance: NAPROXEN
     Indication: PRODUCT USED FOR UNKNOWN INDICATION
     Dosage: 500 MILLIGRAM
     Route: 065
  3. CALCIUM CARBONATE. [Concomitant]
     Active Substance: CALCIUM CARBONATE
     Indication: PRODUCT USED FOR UNKNOWN INDICATION
     Route: 065
  4. REVLIMID [Suspect]
     Active Substance: LENALIDOMIDE
     Route: 048
     Dates: start: 20130712
  5. REVLIMID [Suspect]
     Active Substance: LENALIDOMIDE
     Indication: MYELODYSPLASTIC SYNDROME
     Route: 048
     Dates: start: 20140130, end: 20140219
  6. ETOPOSIDE. [Suspect]
     Active Substance: ETOPOSIDE
     Indication: MYELODYSPLASTIC SYNDROME
     Route: 065
     Dates: start: 20131105, end: 20140310

REACTIONS (1)
  - Breast cancer stage II [Recovered/Resolved]

NARRATIVE: CASE EVENT DATE: 20160301
